FAERS Safety Report 9471014 (Version 1)
Quarter: 2013Q3

REPORT INFORMATION
  Report Type: Spontaneous
  Country: TR (occurrence: None)
  Receive Date: 20130815
  Receipt Date: 20130815
  Transmission Date: 20140515
  Serious: Yes (Life-Threatening)
  Sender: FDA-Public Use
  Company Number: FK201303152

PATIENT
  Age: 32 Year
  Sex: Female

DRUGS (2)
  1. METHYLPREDNISOLONE [Suspect]
     Indication: MULTIPLE SCLEROSIS
     Route: 042
  2. INTERFERON BETA 1B [Concomitant]

REACTIONS (3)
  - Cerebral venous thrombosis [None]
  - Hyperreflexia [None]
  - Transverse sinus thrombosis [None]
